FAERS Safety Report 7194344-0 (Version None)
Quarter: 2010Q4

REPORT INFORMATION
  Report Type: 
  Country: None (occurrence: None)
  Receive Date: 20101223
  Receipt Date: 20101213
  Transmission Date: 20110411
  Serious: No
  Sender: FDA-Public Use
  Company Number: US-ELI_LILLY_AND_COMPANY-US201012003568

PATIENT
  Sex: Female

DRUGS (1)
  1. CYMBALTA [Suspect]
     Indication: NEURALGIA
     Dosage: 30 MG, 2/D
     Dates: start: 20090101

REACTIONS (4)
  - HEPATIC ENZYME INCREASED [None]
  - NAUSEA [None]
  - OFF LABEL USE [None]
  - WITHDRAWAL SYNDROME [None]
